FAERS Safety Report 22676681 (Version 2)
Quarter: 2023Q4

REPORT INFORMATION
  Report Type: Report from Study
  Country: DE (occurrence: DE)
  Receive Date: 20230706
  Receipt Date: 20231220
  Transmission Date: 20240109
  Serious: Yes (Other)
  Sender: FDA-Public Use
  Company Number: DE-PFIZER INC-202300239450

PATIENT
  Age: 79 Year
  Sex: Male

DRUGS (7)
  1. IDARUBICIN HYDROCHLORIDE [Suspect]
     Active Substance: IDARUBICIN HYDROCHLORIDE
     Indication: Peripheral T-cell lymphoma unspecified
     Dosage: 10 MG, CYCLIC
     Route: 048
  2. TROFOSFAMIDE [Suspect]
     Active Substance: TROFOSFAMIDE
     Indication: Peripheral T-cell lymphoma unspecified
     Dosage: 150 MG, CYCLIC
     Route: 048
  3. ETOPOSIDE [Suspect]
     Active Substance: ETOPOSIDE
     Indication: Peripheral T-cell lymphoma unspecified
     Dosage: 50 MG, CYCLIC
     Route: 048
  4. PROCARBAZINE [Suspect]
     Active Substance: PROCARBAZINE
     Indication: Peripheral T-cell lymphoma unspecified
     Dosage: 100 MG, CYCLIC
     Route: 048
  5. PREDNISOLONE [Suspect]
     Active Substance: PREDNISOLONE
     Indication: Peripheral T-cell lymphoma unspecified
     Dosage: 100 MG, CYCLIC
     Route: 048
  6. SULFAMETHOXAZOLE AND TRIMETHOPRIM [Concomitant]
     Active Substance: SULFAMETHOXAZOLE\TRIMETHOPRIM
     Indication: Prophylaxis
     Dosage: UNK
  7. ACYCLOVIR [Concomitant]
     Active Substance: ACYCLOVIR
     Dosage: UNK

REACTIONS (2)
  - Thrombocytopenia [Not Recovered/Not Resolved]
  - Transaminases increased [Recovering/Resolving]
